FAERS Safety Report 10090831 (Version 1)
Quarter: 2014Q2

REPORT INFORMATION
  Report Type: Spontaneous
  Country: FR (occurrence: FR)
  Receive Date: 20140421
  Receipt Date: 20140421
  Transmission Date: 20141212
  Serious: Yes (Other)
  Sender: FDA-Public Use
  Company Number: PHHY2014FR046729

PATIENT
  Age: 64 Year
  Sex: Female
  Weight: 60 kg

DRUGS (2)
  1. MIRTAZAPINE SANDOZ [Suspect]
     Dosage: 15 MG, QD
     Route: 048
  2. ALPRAZOLAM [Concomitant]

REACTIONS (9)
  - Cyanosis [Unknown]
  - Weight increased [Unknown]
  - Chills [Unknown]
  - Hot flush [Unknown]
  - Feeling abnormal [Unknown]
  - Increased appetite [Unknown]
  - Back pain [Unknown]
  - Joint swelling [Unknown]
  - Peripheral swelling [Unknown]
